FAERS Safety Report 24083449 (Version 1)
Quarter: 2024Q3

REPORT INFORMATION
  Report Type: Spontaneous
  Country: CN (occurrence: CN)
  Receive Date: 20240712
  Receipt Date: 20240712
  Transmission Date: 20241017
  Serious: Yes (Hospitalization)
  Sender: JOHNSON AND JOHNSON
  Company Number: CN-JNJFOC-20240721707

PATIENT
  Age: 38 Year
  Sex: Male
  Weight: 90 kg

DRUGS (6)
  1. INVEGA [Suspect]
     Active Substance: PALIPERIDONE
     Indication: Bipolar disorder
     Route: 048
     Dates: start: 20230821, end: 20230918
  2. INVEGA [Suspect]
     Active Substance: PALIPERIDONE
     Indication: Mania
  3. QUETIAPINE FUMARATE [Suspect]
     Active Substance: QUETIAPINE FUMARATE
     Indication: Bipolar disorder
     Route: 048
     Dates: start: 20230417, end: 20230918
  4. QUETIAPINE FUMARATE [Suspect]
     Active Substance: QUETIAPINE FUMARATE
     Indication: Mania
  5. VALPROATE SODIUM [Concomitant]
     Active Substance: VALPROATE SODIUM
     Indication: Bipolar disorder
     Route: 048
     Dates: start: 20230417, end: 20230918
  6. VALPROATE SODIUM [Concomitant]
     Active Substance: VALPROATE SODIUM
     Indication: Mania

REACTIONS (1)
  - Hyperlipidaemia [Unknown]

NARRATIVE: CASE EVENT DATE: 20230904
